FAERS Safety Report 18261958 (Version 4)
Quarter: 2021Q4

REPORT INFORMATION
  Report Type: Report from Study
  Country: CO (occurrence: CO)
  Receive Date: 20200914
  Receipt Date: 20211125
  Transmission Date: 20220303
  Serious: Yes (Hospitalization)
  Sender: FDA-Public Use
  Company Number: NVSC2020CO224715

PATIENT
  Sex: Female
  Weight: 65 kg

DRUGS (3)
  1. ELTROMBOPAG OLAMINE [Suspect]
     Active Substance: ELTROMBOPAG OLAMINE
     Indication: Aplastic anaemia
     Dosage: 25 MG, QID
     Route: 048
     Dates: start: 202006
  2. ELTROMBOPAG OLAMINE [Suspect]
     Active Substance: ELTROMBOPAG OLAMINE
     Dosage: 150 MG, QD (TABLET OF 25MG)
     Route: 048
  3. ELTROMBOPAG OLAMINE [Suspect]
     Active Substance: ELTROMBOPAG OLAMINE
     Dosage: 75 MG, QD (TABLET OF 25MG)
     Route: 048

REACTIONS (12)
  - Ill-defined disorder [Unknown]
  - Aplastic anaemia [Unknown]
  - Feeling abnormal [Unknown]
  - Hypotension [Unknown]
  - Platelet count decreased [Unknown]
  - Inflammation [Recovered/Resolved]
  - Nausea [Unknown]
  - Fatigue [Unknown]
  - Swelling [Unknown]
  - Discomfort [Unknown]
  - Product availability issue [Unknown]
  - Incorrect dose administered [Unknown]
